FAERS Safety Report 5621713-X (Version None)
Quarter: 2008Q1

REPORT INFORMATION
  Report Type: 
  Country: None (occurrence: None)
  Receive Date: 20080211
  Receipt Date: 20080130
  Transmission Date: 20080703
  Serious: Yes (Other)
  Sender: FDA-Public Use
  Company Number: PHHO2008US01837

PATIENT
  Age: 41 Year
  Sex: Female
  Weight: 133 kg

DRUGS (4)
  1. AMN107 [Suspect]
     Indication: CHRONIC MYELOID LEUKAEMIA
     Dosage: 800 MG, UNK
     Route: 048
     Dates: start: 20061019, end: 20071020
  2. WELLBUTRIN [Concomitant]
     Indication: DEPRESSION
  3. AVALIDE [Concomitant]
     Indication: HYPERTENSION
  4. COREG [Concomitant]
     Indication: HEART RATE IRREGULAR

REACTIONS (3)
  - ABORTION SPONTANEOUS [None]
  - DRUG EXPOSURE DURING PREGNANCY [None]
  - STILLBIRTH [None]
